FAERS Safety Report 13180441 (Version 3)
Quarter: 2017Q1

REPORT INFORMATION
  Report Type: Spontaneous
  Country: BE (occurrence: BE)
  Receive Date: 20170202
  Receipt Date: 20170224
  Transmission Date: 20170428
  Serious: Yes (Other)
  Sender: FDA-Public Use
  Company Number: BE-JNJFOC-20170127643

PATIENT
  Age: 68 Year
  Sex: Female

DRUGS (1)
  1. STELARA [Suspect]
     Active Substance: USTEKINUMAB
     Indication: PSORIASIS
     Route: 058

REACTIONS (8)
  - Bone loss [Unknown]
  - Osteonecrosis [Unknown]
  - Dysbacteriosis [Unknown]
  - Back pain [Unknown]
  - Polyarthritis [Unknown]
  - Osteoporosis [Not Recovered/Not Resolved]
  - Immunodeficiency [Unknown]
  - Psoriasis [Unknown]
